FAERS Safety Report 6994646-4 (Version None)
Quarter: 2010Q3

REPORT INFORMATION
  Report Type: 
  Country: None (occurrence: None)
  Receive Date: 20100915
  Receipt Date: 20100915
  Transmission Date: 20110219
  Serious: No
  Sender: FDA-Public Use
  Company Number: None

PATIENT
  Sex: Female
  Weight: 67.586 kg

DRUGS (2)
  1. FOSAMAX [Suspect]
     Indication: FALL
     Dates: start: 20060201, end: 20060301
  2. FOSAMAX [Suspect]
     Indication: FOOT FRACTURE
     Dates: start: 20060201, end: 20060301

REACTIONS (1)
  - OESOPHAGEAL OEDEMA [None]
